FAERS Safety Report 25157506 (Version 3)
Quarter: 2025Q3

REPORT INFORMATION
  Report Type: Spontaneous
  Country: US (occurrence: US)
  Receive Date: 20250403
  Receipt Date: 20250915
  Transmission Date: 20251020
  Serious: Yes (Hospitalization, Other)
  Sender: VERTEX
  Company Number: US-VERTEX PHARMACEUTICALS-2025-004809

PATIENT
  Sex: Female

DRUGS (1)
  1. ALYFTREK [Suspect]
     Active Substance: DEUTIVACAFTOR\TEZACAFTOR\VANZACAFTOR
     Indication: Cystic fibrosis
     Route: 048
     Dates: start: 2025

REACTIONS (18)
  - Pneumonia [Unknown]
  - Endometriosis [Unknown]
  - Abdominal infection [Unknown]
  - Adnexal torsion [Unknown]
  - Ovarian cyst [Unknown]
  - Complication associated with device [Unknown]
  - Device dislocation [Unknown]
  - Drug-induced liver injury [Unknown]
  - Personality change [Unknown]
  - Sinus disorder [Not Recovered/Not Resolved]
  - Implant site discolouration [Not Recovered/Not Resolved]
  - Gastrointestinal disorder [Not Recovered/Not Resolved]
  - Panic disorder [Unknown]
  - Anxiety [Unknown]
  - Blunted affect [Unknown]
  - Mental disorder [Unknown]
  - Depression [Unknown]
  - Rash [Unknown]
